FAERS Safety Report 14883811 (Version 4)
Quarter: 2018Q3

REPORT INFORMATION
  Report Type: Spontaneous
  Country: US (occurrence: US)
  Receive Date: 20180511
  Receipt Date: 20180711
  Transmission Date: 20181010
  Serious: No
  Sender: FDA-Public Use
  Company Number: US-LEXICON PHARMACEUTICALS, INC-18-1606-00480

PATIENT
  Age: 69 Year
  Sex: Female
  Weight: 58.57 kg

DRUGS (30)
  1. OMEGA 3 [Concomitant]
     Active Substance: OMEGA-3 FATTY ACIDS
  2. SANDOSTATIN [Concomitant]
     Active Substance: OCTREOTIDE ACETATE
     Dosage: 50 MCG/ML
  3. ONDANSETRON [Concomitant]
     Active Substance: ONDANSETRON
  4. PROCHLORPERAZINE. [Concomitant]
     Active Substance: PROCHLORPERAZINE
  5. VAGIFEM [Concomitant]
     Active Substance: ESTRADIOL
  6. ZOLOFT [Concomitant]
     Active Substance: SERTRALINE HYDROCHLORIDE
  7. CINNAMON. [Concomitant]
     Active Substance: CINNAMON
  8. LOPERAMIDE [Concomitant]
     Active Substance: LOPERAMIDE
  9. TEMODAR [Concomitant]
     Active Substance: TEMOZOLOMIDE
  10. PROBIOTIC [Concomitant]
     Active Substance: PROBIOTICS NOS
  11. TYLENOL [Concomitant]
     Active Substance: ACETAMINOPHEN
  12. ZOLPIDEM [Concomitant]
     Active Substance: ZOLPIDEM\ZOLPIDEM TARTRATE
  13. SIMVASTATIN. [Concomitant]
     Active Substance: SIMVASTATIN
  14. CAL?CITRATE PLUS VITAMIN D [Concomitant]
     Dosage: 250?100 MG ? UNITS
  15. TELOTRISTAT ETHYL [Suspect]
     Active Substance: TELOTRISTAT ETHYL
     Indication: CARCINOID SYNDROME
     Route: 048
     Dates: start: 20170326, end: 201804
  16. MULTIVITAMIN ADULT [Concomitant]
  17. CRANBERRY. [Concomitant]
     Active Substance: CRANBERRY
  18. DIPHEN/ATROP [Concomitant]
     Active Substance: ATROPINE SULFATE\DIPHENOXYLATE
  19. AFINITOR [Concomitant]
     Active Substance: EVEROLIMUS
  20. CURCUMIN [Concomitant]
     Active Substance: CURCUMIN
     Dosage: 95 500 MG
  21. COENZYME Q10 [Concomitant]
     Active Substance: UBIDECARENONE
  22. TELOTRISTAT ETHYL [Suspect]
     Active Substance: TELOTRISTAT ETHYL
     Route: 048
     Dates: start: 201804, end: 2018
  23. FLUTICASONE PROPIONATE. [Concomitant]
     Active Substance: FLUTICASONE PROPIONATE
  24. XELODA [Concomitant]
     Active Substance: CAPECITABINE
  25. PREVALITE [Concomitant]
     Active Substance: CHOLESTYRAMINE
  26. TELOTRISTAT ETHYL [Suspect]
     Active Substance: TELOTRISTAT ETHYL
     Indication: NEUROENDOCRINE TUMOUR OF THE LUNG
     Route: 048
     Dates: start: 20170319, end: 20170325
  27. TELOTRISTAT ETHYL [Suspect]
     Active Substance: TELOTRISTAT ETHYL
     Route: 048
     Dates: start: 2018
  28. VITAMIN B12 [Concomitant]
     Active Substance: CYANOCOBALAMIN
  29. VITAMIN C [Concomitant]
     Active Substance: ASCORBIC ACID
  30. VITAMIN D [Concomitant]
     Active Substance: CHOLECALCIFEROL

REACTIONS (2)
  - Diarrhoea [Recovered/Resolved]
  - Constipation [Recovered/Resolved with Sequelae]

NARRATIVE: CASE EVENT DATE: 2018
